FAERS Safety Report 6630867-8 (Version None)
Quarter: 2010Q1

REPORT INFORMATION
  Report Type: 
  Country: None (occurrence: None)
  Receive Date: 20100310
  Receipt Date: 20100310
  Transmission Date: 20100710
  Serious: Yes (Hospitalization)
  Sender: FDA-Public Use
  Company Number: None

PATIENT
  Sex: Male
  Weight: 23.8 kg

DRUGS (3)
  1. RAPAMUNE [Suspect]
     Dosage: 50.4 MG
  2. TACROLIMUS [Suspect]
     Dosage: 11.79 MG
  3. METHOTREXATE [Suspect]
     Dosage: 13.8 MG

REACTIONS (15)
  - ABDOMINAL DISTENSION [None]
  - ACUTE RESPIRATORY DISTRESS SYNDROME [None]
  - BLOOD CALCIUM INCREASED [None]
  - BRADYCARDIA [None]
  - DIARRHOEA [None]
  - HAEMORRHAGE [None]
  - HEPATIC FUNCTION ABNORMAL [None]
  - HYPOTENSION [None]
  - METABOLIC ACIDOSIS [None]
  - MULTI-ORGAN FAILURE [None]
  - MYDRIASIS [None]
  - OEDEMA [None]
  - RENAL FAILURE [None]
  - THROMBOCYTOSIS [None]
  - VENOOCCLUSIVE LIVER DISEASE [None]
